FAERS Safety Report 6041935-6 (Version None)
Quarter: 2009Q1

REPORT INFORMATION
  Report Type: 
  Country: None (occurrence: None)
  Receive Date: 20090116
  Receipt Date: 20090105
  Transmission Date: 20090719
  Serious: Yes (Hospitalization)
  Sender: FDA-Public Use
  Company Number: NL-ROCHE-606344

PATIENT
  Weight: 56 kg

DRUGS (4)
  1. CAPECITABINE [Suspect]
     Route: 065
     Dates: start: 20080812, end: 20081209
  2. EPIRUBICIN [Suspect]
     Route: 065
     Dates: start: 20080812, end: 20081209
  3. CISPLATIN [Suspect]
     Route: 065
     Dates: start: 20080812, end: 20081209
  4. DICLOFENAC [Suspect]
     Indication: DRUG USE FOR UNKNOWN INDICATION
     Route: 065
     Dates: start: 20081107

REACTIONS (3)
  - HEPATITIS TOXIC [None]
  - HEPATITIS VIRAL [None]
  - METASTASIS [None]
